FAERS Safety Report 13277434 (Version 4)
Quarter: 2017Q2

REPORT INFORMATION
  Report Type: Report from Study
  Country: JP (occurrence: JP)
  Receive Date: 20170228
  Receipt Date: 20170629
  Transmission Date: 20170830
  Serious: Yes (Other)
  Sender: FDA-Public Use
  Company Number: JP-GILEAD-E2B_00001003

PATIENT
  Age: 32 Year
  Sex: Female
  Weight: 36 kg

DRUGS (17)
  1. BERAPROST SODIUM [Concomitant]
     Active Substance: BERAPROST SODIUM
     Dosage: UNK
  2. AMBRISENTAN [Suspect]
     Active Substance: AMBRISENTAN
     Indication: PULMONARY ARTERIAL HYPERTENSION
     Dosage: 2.5 MG, QD
     Route: 048
     Dates: start: 20101110, end: 20101201
  3. DIART [Concomitant]
     Active Substance: AZOSEMIDE
     Dosage: UNK
  4. FUROSEMIDE. [Concomitant]
     Active Substance: FUROSEMIDE
     Dosage: UNK
  5. BOSENTAN. [Concomitant]
     Active Substance: BOSENTAN
     Indication: RIGHT-TO-LEFT CARDIAC SHUNT
  6. RENIVACE [Concomitant]
     Active Substance: ENALAPRIL
     Dosage: UNK
  7. BOSENTAN. [Concomitant]
     Active Substance: BOSENTAN
     Indication: PULMONARY ARTERIAL HYPERTENSION
  8. ZYLORIC [Concomitant]
     Active Substance: ALLOPURINOL
     Dosage: UNK
  9. BERASUS [Concomitant]
     Active Substance: BERAPROST SODIUM
  10. ALDACTONE A [Concomitant]
     Active Substance: SPIRONOLACTONE
     Dosage: UNK
  11. ZYLORIC [Concomitant]
     Active Substance: ALLOPURINOL
     Dosage: UNK
  12. BERAPROST SODIUM [Concomitant]
     Active Substance: BERAPROST SODIUM
     Dosage: UNK
  13. REVATIO [Concomitant]
     Active Substance: SILDENAFIL CITRATE
     Route: 048
  14. REVATIO [Concomitant]
     Active Substance: SILDENAFIL CITRATE
     Dosage: UNK
     Route: 048
  15. WARFARIN [Concomitant]
     Active Substance: WARFARIN
     Dosage: UNK
  16. REVATIO [Concomitant]
     Active Substance: SILDENAFIL CITRATE
     Dosage: UNK
     Route: 048
  17. FUROSEMIDE. [Concomitant]
     Active Substance: FUROSEMIDE
     Dosage: UNK

REACTIONS (2)
  - Off label use [Recovered/Resolved]
  - Platelet count decreased [Recovered/Resolved]

NARRATIVE: CASE EVENT DATE: 20101110
